FAERS Safety Report 8605119-7 (Version None)
Quarter: 2012Q3

REPORT INFORMATION
  Report Type: 
  Country: None (occurrence: None)
  Receive Date: 20120820
  Receipt Date: 20120806
  Transmission Date: 20120928
  Serious: Yes (Other)
  Sender: FDA-Public Use
  Company Number: KR-FRI-1000037800

PATIENT
  Sex: Male

DRUGS (8)
  1. DIGOXIN [Concomitant]
     Indication: ATRIAL FIBRILLATION
     Dosage: 0.25 MG
     Route: 048
     Dates: start: 20011120
  2. AMILORIDE HYDROCHLORIDE [Concomitant]
     Indication: HYPERTENSION
     Dosage: 5 MG
     Route: 048
     Dates: start: 20040504
  3. WARFARIN SODIUM [Concomitant]
     Indication: ATRIAL FIBRILLATION
     Dosage: 2 MG
     Route: 048
     Dates: start: 20080827, end: 20101001
  4. WARFARIN SODIUM [Concomitant]
     Dosage: 5 MG
     Route: 048
     Dates: start: 20081224, end: 20101001
  5. GLICLAZIDE [Concomitant]
     Indication: DIABETES MELLITUS
     Dosage: 60 MG
     Route: 048
     Dates: start: 20080817
  6. NEBIVOLOL [Suspect]
     Indication: HYPERTENSION
     Dosage: 2.5 MG
     Route: 048
     Dates: start: 20100128
  7. HYDROCHLOROTHIAZIDE [Concomitant]
     Indication: HYPERTENSION
     Dosage: 25 MG
     Route: 048
     Dates: start: 20011120
  8. AFLOQUALONE [Concomitant]
     Indication: RADICULOPATHY
     Dosage: 20 MG
     Route: 048
     Dates: start: 20100428

REACTIONS (1)
  - CHRONIC MYELOID LEUKAEMIA [None]
